FAERS Safety Report 5799468-8 (Version None)
Quarter: 2008Q3

REPORT INFORMATION
  Report Type: 
  Country: None (occurrence: None)
  Receive Date: 20080701
  Receipt Date: 20080701
  Transmission Date: 20090109
  Serious: Yes (Hospitalization)
  Sender: FDA-Public Use
  Company Number: None

PATIENT
  Sex: Female
  Weight: 54.6 kg

DRUGS (7)
  1. CARBOPLATIN [Suspect]
     Dosage: 614 MG
     Dates: start: 20080612, end: 20080612
  2. TAXOL [Suspect]
     Dosage: 278 MG
     Dates: end: 20080612
  3. EFFEXOR [Concomitant]
  4. LABETALOL HCL [Concomitant]
  5. LISINOPRIL [Concomitant]
  6. LOVENOX [Concomitant]
  7. SIMVASTATIN [Concomitant]

REACTIONS (15)
  - ANAEMIA [None]
  - ATELECTASIS [None]
  - BLOOD POTASSIUM DECREASED [None]
  - ELECTROLYTE IMBALANCE [None]
  - HAEMATOCRIT DECREASED [None]
  - HAEMOGLOBIN DECREASED [None]
  - HYPERTENSION [None]
  - HYPOGLYCAEMIA [None]
  - HYPOPHOSPHATAEMIA [None]
  - NAUSEA [None]
  - NEUTROPHIL COUNT DECREASED [None]
  - PLEURAL EFFUSION [None]
  - TACHYCARDIA [None]
  - VOMITING [None]
  - WHITE BLOOD CELL COUNT DECREASED [None]
